FAERS Safety Report 5191574-4 (Version None)
Quarter: 2006Q4

REPORT INFORMATION
  Report Type: 
  Country: None (occurrence: None)
  Receive Date: 20061220
  Receipt Date: 20061220
  Transmission Date: 20070319
  Serious: Yes (Death)
  Sender: FDA-Public Use
  Company Number: None

PATIENT
  Age: 60 Year
  Sex: Female
  Weight: 61.2356 kg

DRUGS (1)
  1. CIPRO XR [Suspect]
     Indication: CYSTITIS
     Dosage: 500 MG 1XDAILY FOR 5 DAYS PO
     Route: 048
     Dates: start: 20061206, end: 20061210

REACTIONS (2)
  - CEREBRAL HAEMORRHAGE [None]
  - SUDDEN DEATH [None]
